FAERS Safety Report 22218321 (Version 1)
Quarter: 2023Q2

REPORT INFORMATION
  Report Type: Spontaneous
  Country: JP (occurrence: JP)
  Receive Date: 20230417
  Receipt Date: 20230417
  Transmission Date: 20230722
  Serious: Yes (Hospitalization)
  Sender: FDA-Public Use
  Company Number: JP-Eisai Medical Research-EC-2023-138061

PATIENT
  Sex: Female

DRUGS (2)
  1. HALAVEN [Suspect]
     Active Substance: ERIBULIN MESYLATE
     Indication: Soft tissue sarcoma
     Dosage: DOSE UNKNOWN
     Route: 041
     Dates: start: 20211206, end: 2022
  2. HALAVEN [Suspect]
     Active Substance: ERIBULIN MESYLATE
     Dosage: 1.1 UNIT NOT PROVIDED
     Route: 041
     Dates: start: 20230403

REACTIONS (1)
  - Neutropenia [Not Recovered/Not Resolved]

NARRATIVE: CASE EVENT DATE: 20230403
